FAERS Safety Report 11731651 (Version 1)
Quarter: 2015Q4

REPORT INFORMATION
  Report Type: Spontaneous
  Country: GB (occurrence: GB)
  Receive Date: 20151112
  Receipt Date: 20151112
  Transmission Date: 20160304
  Serious: Yes (Other)
  Sender: FDA-Public Use
  Company Number: GB-AMGEN-GBRSP2015119135

PATIENT
  Age: 77 Year
  Sex: Female
  Weight: 62 kg

DRUGS (14)
  1. DIGOXIN. [Concomitant]
     Active Substance: DIGOXIN
     Dosage: 1 DF, 1X/DAY
     Dates: start: 20150716
  2. METHOTREXATE [Concomitant]
     Active Substance: METHOTREXATE
     Dosage: THIS PRODUCT NOT ADVISED  ISSUED BY HOSPITAL ONLY
     Dates: start: 20150105, end: 20150921
  3. ISOSORBIDE MONONITRATE. [Concomitant]
     Active Substance: ISOSORBIDE MONONITRATE
     Dosage: 0.5 DF, 2X/DAY
     Dates: start: 20150105, end: 20150921
  4. CODEINE PHOSPHATE [Concomitant]
     Active Substance: CODEINE PHOSPHATE
     Dosage: AT NIGHT AS REQUIRED
     Dates: start: 20140602, end: 20150921
  5. OMEPRAZOLE. [Concomitant]
     Active Substance: OMEPRAZOLE
     Dosage: 1 DF, 1X/DAY
     Dates: start: 20150716
  6. ENBREL [Suspect]
     Active Substance: ETANERCEPT
     Indication: PRODUCT USED FOR UNKNOWN INDICATION
     Dosage: UNK
     Route: 065
     Dates: start: 20151019
  7. CLONAZEPAM. [Concomitant]
     Active Substance: CLONAZEPAM
     Dosage: USE AS DIRECTED AT NIGHT INCREASING BY .5 MG EV...
     Dates: start: 20151012
  8. LISINOPRIL. [Concomitant]
     Active Substance: LISINOPRIL
     Dosage: 1 DF, 1X/DAY
     Dates: start: 20150105
  9. PARACETAMOL [Concomitant]
     Active Substance: ACETAMINOPHEN
     Dosage: UP TO 2 FOUR TIMES A DAY IF REQUIRED
     Dates: start: 20150105
  10. FOLIC ACID. [Concomitant]
     Active Substance: FOLIC ACID
     Dosage: 1 DF, 3X/DAY
     Dates: start: 20150105, end: 20150921
  11. FUROSEMIDE. [Concomitant]
     Active Substance: FUROSEMIDE
     Dosage: IN THE MORNING
     Dates: start: 20150105
  12. GABAPENTIN. [Concomitant]
     Active Substance: GABAPENTIN
     Indication: MUSCLE SPASMS
     Dosage: AT NIGHT
     Dates: start: 20150325, end: 20150921
  13. WARFARIN SODIUM. [Concomitant]
     Active Substance: WARFARIN SODIUM
     Dosage: AS DIRECTED
     Dates: start: 20150105
  14. MIRTAZAPINE. [Concomitant]
     Active Substance: MIRTAZAPINE
     Dosage: 1 TO 2 HOURS BEFORE  BEDTIME
     Dates: start: 20150819, end: 20150916

REACTIONS (3)
  - Neurological symptom [Unknown]
  - Abnormal loss of weight [Unknown]
  - Myoclonus [Not Recovered/Not Resolved]

NARRATIVE: CASE EVENT DATE: 20151019
